FAERS Safety Report 6801962-5 (Version None)
Quarter: 2010Q2

REPORT INFORMATION
  Report Type: 
  Country: None (occurrence: None)
  Receive Date: 20100629
  Receipt Date: 20100614
  Transmission Date: 20101027
  Serious: Yes (Other)
  Sender: FDA-Public Use
  Company Number: TH-GENENTECH-303563

PATIENT

DRUGS (2)
  1. LUCENTIS [Suspect]
     Indication: POLYPOIDAL CHOROIDAL VASCULOPATHY
     Route: 031
  2. VISUDYNE [Suspect]
     Indication: POLYPOIDAL CHOROIDAL VASCULOPATHY

REACTIONS (3)
  - ANGIOPATHY [None]
  - POLYPOIDAL CHOROIDAL VASCULOPATHY [None]
  - RETINAL HAEMORRHAGE [None]
